FAERS Safety Report 4526562-1 (Version None)
Quarter: 2004Q4

REPORT INFORMATION
  Report Type: 
  Country: None (occurrence: None)
  Receive Date: 20041210
  Receipt Date: 20041129
  Transmission Date: 20050328
  Serious: Yes (Congenital Anomaly, Other)
  Sender: FDA-Public Use
  Company Number: 2004028779

PATIENT
  Age: 1 Day
  Sex: Male

DRUGS (4)
  1. VIRACEPT [Suspect]
     Indication: HIV TEST POSITIVE
     Dosage: ORAL
     Route: 048
  2. ZIDOVUDINE W/LAMIVUDINE (LAMIVUDINE, ZIDOVUDINE) [Suspect]
     Indication: HIV TEST POSITIVE
     Dosage: ORAL
     Route: 048
  3. ZIDOVUDINE [Suspect]
     Indication: HIV TEST POSITIVE
     Dosage: INTRAVENOUS
     Route: 042
     Dates: start: 20031014, end: 20031014
  4. LAMIVUDINE [Suspect]
     Indication: HIV TEST POSITIVE

REACTIONS (5)
  - ANAEMIA NEONATAL [None]
  - CONGENITAL ANOMALY [None]
  - DRUG EXPOSURE DURING PREGNANCY [None]
  - GLUCOSE-6-PHOSPHATE DEHYDROGENASE DEFICIENCY [None]
  - PREMATURE LABOUR [None]
